FAERS Safety Report 10780393 (Version 2)
Quarter: 2015Q3

REPORT INFORMATION
  Report Type: Spontaneous
  Country: US (occurrence: US)
  Receive Date: 20150210
  Receipt Date: 20150813
  Transmission Date: 20151125
  Serious: No
  Sender: FDA-Public Use
  Company Number: US-GLAXOSMITHKLINE-A1084016A

PATIENT
  Age: 65 Year
  Sex: Female

DRUGS (6)
  1. TRIAMCINOLONE CREAM [Concomitant]
  2. TYKERB [Suspect]
     Active Substance: LAPATINIB DITOSYLATE
     Indication: BREAST CANCER
     Dosage: 250 MG TABLETS AT 1000 MG DAILY
     Route: 048
     Dates: start: 20140201
  3. TYKERB [Suspect]
     Active Substance: LAPATINIB DITOSYLATE
     Dosage: 250 MG TABLETS AT 1000 MG DAILY
     Route: 048
     Dates: start: 20140610
  4. LETROZOLE. [Concomitant]
     Active Substance: LETROZOLE
  5. ENOXAPARIN [Concomitant]
     Active Substance: ENOXAPARIN
  6. METOPROLOL SUCCINATE. [Concomitant]
     Active Substance: METOPROLOL SUCCINATE

REACTIONS (6)
  - Rash [Unknown]
  - Intentional product misuse [Unknown]
  - Nervousness [Unknown]
  - Asthenia [Unknown]
  - Mobility decreased [Unknown]
  - Myopathy [Unknown]

NARRATIVE: CASE EVENT DATE: 20140728
